FAERS Safety Report 7504587-1 (Version None)
Quarter: 2011Q2

REPORT INFORMATION
  Report Type: 
  Country: None (occurrence: None)
  Receive Date: 20110525
  Receipt Date: 20110510
  Transmission Date: 20111010
  Serious: Yes (Other)
  Sender: FDA-Public Use
  Company Number: CA-UCBSA-015188

PATIENT
  Sex: Female
  Weight: 75.7 kg

DRUGS (14)
  1. EPIPEN [Concomitant]
     Dosage: 1 DOSAGE
  2. CIMZIA [Suspect]
     Indication: RHEUMATOID ARTHRITIS
     Route: 058
     Dates: start: 20100414, end: 20100428
  3. PREDNISONE [Concomitant]
     Dosage: DAILY; LONG TERM
     Route: 048
  4. CETIRIZINE HCL [Concomitant]
     Route: 048
  5. NOVO RABEPRAZOLE [Concomitant]
     Indication: GASTROOESOPHAGEAL REFLUX DISEASE
     Dosage: LONG TERM
     Route: 048
  6. ETTEDRONE ASEDISODIUM [Concomitant]
     Dosage: ONCE A DAY
  7. ADVAIR DISKUS 100/50 [Concomitant]
     Indication: ASTHMA EXERCISE INDUCED
     Dosage: ROUTE:INH; LONG TERM
  8. VITAMIN B-12 [Concomitant]
     Dosage: MONTHLY
  9. RAMIPRIL [Concomitant]
     Indication: HYPERTENSION
     Dosage: DAILY; LONG TERM
     Route: 048
  10. DIDROCAL [Concomitant]
     Indication: OSTEOPOROSIS PROPHYLAXIS
     Dosage: DAILY; LONG TERM
     Route: 048
  11. CIMZIA [Suspect]
     Dosage: ONCE
     Route: 058
     Dates: start: 20100505
  12. VENTOLIN [Concomitant]
     Dosage: AS NECESSARY ONCE EVERY 4-6 HOURS
  13. PREDNISONE [Concomitant]
     Indication: RHEUMATOID ARTHRITIS
     Route: 048
  14. VIT D [Concomitant]
     Dosage: ONCE A DAY

REACTIONS (3)
  - LAPAROSCOPIC SURGERY [None]
  - DIARRHOEA [None]
  - POST PROCEDURAL DISCHARGE [None]
